FAERS Safety Report 9008644 (Version 1)
Quarter: 2013Q1

REPORT INFORMATION
  Report Type: Report from Study
  Country: AR (occurrence: AR)
  Receive Date: 20130111
  Receipt Date: 20130111
  Transmission Date: 20140127
  Serious: Yes (Hospitalization)
  Sender: FDA-Public Use
  Company Number: AR-BAYER-2013-003200

PATIENT
  Age: 34 Year
  Sex: Female

DRUGS (4)
  1. MOXIFLOXACIN [Suspect]
     Indication: TUBERCULOSIS
  2. CYCLOSERINE [Suspect]
     Indication: TUBERCULOSIS
  3. ETHAMBUTOL [Suspect]
     Indication: TUBERCULOSIS
  4. PARA-AMINOSALICYLIC ACID [Suspect]
     Indication: TUBERCULOSIS

REACTIONS (2)
  - Drug reaction with eosinophilia and systemic symptoms [Recovered/Resolved]
  - Hepatitis toxic [Recovered/Resolved]
